FAERS Safety Report 9271786 (Version 2)
Quarter: 2013Q3

REPORT INFORMATION
  Report Type: Spontaneous
  Country: US (occurrence: US)
  Receive Date: 20130506
  Receipt Date: 20130827
  Transmission Date: 20140515
  Serious: Yes (Hospitalization, Other)
  Sender: FDA-Public Use
  Company Number: US-SANOFI-AVENTIS-2013SA044520

PATIENT
  Age: 60 Year
  Sex: Female

DRUGS (10)
  1. AUBAGIO [Suspect]
     Indication: MULTIPLE SCLEROSIS
     Route: 048
     Dates: start: 201302
  2. FAMPRIDINE [Concomitant]
     Indication: GAIT DISTURBANCE
     Route: 048
     Dates: end: 20130422
  3. LIPITOR [Concomitant]
  4. BACLOFEN [Concomitant]
  5. CELEXA [Concomitant]
  6. MULTIVITAMINS [Concomitant]
  7. ASPIRIN [Concomitant]
  8. POLY-IRON [Concomitant]
  9. VITAMIN D3 [Concomitant]
     Dosage: DOSE:2000 UNIT(S)
  10. PROVIGIL [Concomitant]

REACTIONS (11)
  - Dizziness [Not Recovered/Not Resolved]
  - Dizziness [Not Recovered/Not Resolved]
  - Syncope [Not Recovered/Not Resolved]
  - Fall [Unknown]
  - Skeletal injury [Not Recovered/Not Resolved]
  - Back injury [Not Recovered/Not Resolved]
  - Bladder disorder [Unknown]
  - Renal failure [Unknown]
  - Blood creatinine increased [Unknown]
  - Blood pressure increased [Unknown]
  - Gait disturbance [Unknown]
